FAERS Safety Report 19607349 (Version 1)
Quarter: 2021Q3

REPORT INFORMATION
  Report Type: Spontaneous
  Country: JP (occurrence: JP)
  Receive Date: 20210726
  Receipt Date: 20210726
  Transmission Date: 20211014
  Serious: Yes (Hospitalization)
  Sender: FDA-Public Use
  Company Number: JP-ALVOGEN-2021-ALVOGEN-117260

PATIENT
  Age: 9 Year
  Sex: Male
  Weight: 22.8 kg

DRUGS (2)
  1. MELPHALAN. [Suspect]
     Active Substance: MELPHALAN
     Indication: ADRENOLEUKODYSTROPHY
     Dosage: 70 MG/M2 FOR 2 DAYS
     Route: 042
  2. FLUDARABINE [Suspect]
     Active Substance: FLUDARABINE PHOSPHATE
     Indication: ADRENOLEUKODYSTROPHY
     Dosage: 30 MG/M2 FOR 6 DAYS
     Route: 042

REACTIONS (1)
  - Hyponatraemia [Unknown]
